FAERS Safety Report 10627551 (Version 2)
Quarter: 2014Q4

REPORT INFORMATION
  Report Type: Report from Study
  Country: US (occurrence: US)
  Receive Date: 20141205
  Receipt Date: 20141205
  Transmission Date: 20150529
  Serious: No
  Sender: FDA-Public Use
  Company Number: US-AMGEN-USASP2014022459

PATIENT
  Age: 64 Year
  Sex: Male
  Weight: 78.91 kg

DRUGS (1)
  1. ENBREL [Suspect]
     Active Substance: ETANERCEPT
     Indication: RHEUMATOID ARTHRITIS
     Dosage: 50 MG, QWK
     Route: 058

REACTIONS (3)
  - Fungal infection [Recovering/Resolving]
  - Influenza [Recovered/Resolved]
  - Pain in jaw [Recovered/Resolved]
